FAERS Safety Report 5128245-6 (Version None)
Quarter: 2006Q4

REPORT INFORMATION
  Report Type: 
  Country: None (occurrence: None)
  Receive Date: 20061011
  Receipt Date: 20060921
  Transmission Date: 20070319
  Serious: Yes (Other)
  Sender: FDA-Public Use
  Company Number: US200609005528

PATIENT
  Sex: Female

DRUGS (2)
  1. FORTEO [Suspect]
     Indication: OSTEOPOROSIS
     Dosage: UNK, UNK, UNK
  2. FORTEO PEN 9250MCG/ML) FORTEO PEN 250MCG/ML (3ML)) PEN, DISPOSABLE [Concomitant]

REACTIONS (1)
  - ALCOHOLISM [None]
